FAERS Safety Report 16183379 (Version 1)
Quarter: 2019Q2

REPORT INFORMATION
  Report Type: Spontaneous
  Country: JP (occurrence: JP)
  Receive Date: 20190411
  Receipt Date: 20190411
  Transmission Date: 20190711
  Serious: Yes (Other)
  Sender: FDA-Public Use
  Company Number: JP-HQ SPECIALTY-JP-2019INT000096

PATIENT
  Sex: Female
  Weight: 74 kg

DRUGS (2)
  1. MAGNESIUM SULFATE IN DEXTROSE [Suspect]
     Active Substance: MAGNESIUM SULFATE
     Indication: UTERINE CONTRACTIONS DURING PREGNANCY
     Dosage: 1.8?3.0 G/H
     Route: 065
  2. RITODRINE [Suspect]
     Active Substance: RITODRINE
     Indication: UTERINE CONTRACTIONS DURING PREGNANCY
     Dosage: 50?100 MCG/MIN
     Route: 065

REACTIONS (2)
  - Exposure during pregnancy [Unknown]
  - Mirror syndrome [Recovered/Resolved]
